FAERS Safety Report 11777820 (Version 1)
Quarter: 2015Q4

REPORT INFORMATION
  Report Type: Spontaneous
  Country: US (occurrence: US)
  Receive Date: 20151125
  Receipt Date: 20151125
  Transmission Date: 20160304
  Serious: Yes (Death)
  Sender: FDA-Public Use
  Company Number: US-THE MEDICINES COMPANY-US-MDCO-15-00064

PATIENT
  Sex: Male

DRUGS (3)
  1. ANGIOMAX [Suspect]
     Active Substance: BIVALIRUDIN
     Indication: PRODUCT USED FOR UNKNOWN INDICATION
     Dosage: NOT REPORTED
  2. ANGIOMAX [Suspect]
     Active Substance: BIVALIRUDIN
     Dosage: ADJUSTED CONTINUOUS INFUSION
     Route: 041
  3. HEPARIN [Concomitant]
     Active Substance: HEPARIN SODIUM
     Indication: PRODUCT USED FOR UNKNOWN INDICATION
     Dosage: 8000 UNITS
     Route: 040

REACTIONS (2)
  - Coagulation time abnormal [Unknown]
  - Thrombosis [Fatal]

NARRATIVE: CASE EVENT DATE: 201501
